FAERS Safety Report 9096308 (Version 2)
Quarter: 2013Q1

REPORT INFORMATION
  Report Type: Spontaneous
  Country: US (occurrence: US)
  Receive Date: 20130207
  Receipt Date: 20130221
  Transmission Date: 20140127
  Serious: Yes (Hospitalization)
  Sender: FDA-Public Use
  Company Number: US-ELI_LILLY_AND_COMPANY-US201302000436

PATIENT
  Sex: Female
  Weight: 80 kg

DRUGS (9)
  1. EVISTA [Suspect]
     Indication: PROPHYLAXIS
     Dosage: 60 MG, DAILY
     Route: 048
     Dates: start: 20011109, end: 20130103
  2. ANTIVERT [Concomitant]
     Indication: DIZZINESS
     Dosage: 25MG, 1/2 1 QID, PRN
     Dates: start: 20120305
  3. FISH OIL [Concomitant]
     Dosage: 2000 MG, BID
     Route: 048
     Dates: start: 20120307
  4. LISINOPRIL AND HYDROCHLOROTHIAZIDE [Concomitant]
     Dosage: 25/25MG, 1 QD
     Route: 048
     Dates: start: 20121107
  5. NORVASC [Concomitant]
     Dosage: 5 MG, QD
     Route: 048
     Dates: start: 20121129
  6. CALCIUM ACETATE [Concomitant]
     Dosage: 600MG, QHS
     Dates: start: 20120305
  7. MULTIVITAMIN [Concomitant]
     Dosage: 1, QD
     Route: 048
  8. MUCINEX [Concomitant]
     Dosage: , PRNUNK
     Dates: start: 20120305
  9. TOPROL [Concomitant]
     Dosage: 100MG, 1 QD
     Route: 048
     Dates: start: 20010604

REACTIONS (3)
  - Pulmonary embolism [Recovered/Resolved]
  - Gastroenteritis viral [Recovered/Resolved]
  - Nasopharyngitis [Recovered/Resolved]
